FAERS Safety Report 8193208-3 (Version None)
Quarter: 2012Q1

REPORT INFORMATION
  Report Type: 
  Country: None (occurrence: None)
  Receive Date: 20120308
  Receipt Date: 20120223
  Transmission Date: 20120608
  Serious: Yes (Other)
  Sender: FDA-Public Use
  Company Number: NL-MYLANLABS-2012S1004117

PATIENT
  Age: 50 Year
  Sex: Female
  Weight: 68 kg

DRUGS (2)
  1. BETAHISTINE [Concomitant]
     Indication: PRODUCT USED FOR UNKNOWN INDICATION
     Route: 048
     Dates: start: 20110906
  2. ALENDRONATE SODIUM [Suspect]
     Indication: OSTEOPOROSIS
     Dosage: 1 TABLET PER DAG
     Route: 048
     Dates: start: 20110221, end: 20120129

REACTIONS (13)
  - MALAISE [None]
  - CHEST PAIN [None]
  - DYSPEPSIA [None]
  - ABDOMINAL PAIN UPPER [None]
  - DIZZINESS [None]
  - ALOPECIA [None]
  - SLEEP DISORDER [None]
  - MUSCLE SPASMS [None]
  - VISION BLURRED [None]
  - FATIGUE [None]
  - DYSPNOEA [None]
  - ARTHRALGIA [None]
  - HEADACHE [None]
